FAERS Safety Report 4462223-5 (Version None)
Quarter: 2004Q3

REPORT INFORMATION
  Report Type: 
  Country: None (occurrence: None)
  Receive Date: 20040928
  Receipt Date: 20040917
  Transmission Date: 20050211
  Serious: Yes (Death)
  Sender: FDA-Public Use
  Company Number: 04-07-1093

PATIENT
  Age: 34 Year
  Sex: Female

DRUGS (3)
  1. FLUOXETINE [Suspect]
     Indication: DEPRESSION
     Dosage: 20MG DAILY ORAL
     Route: 048
     Dates: start: 20021230, end: 20030731
  2. CANNABIS [Concomitant]
  3. ZOPICLONE [Concomitant]

REACTIONS (3)
  - COMPLETED SUICIDE [None]
  - FALL [None]
  - POLYTRAUMATISM [None]
